FAERS Safety Report 12503809 (Version 1)
Quarter: 2016Q2

REPORT INFORMATION
  Report Type: Spontaneous
  Country: US (occurrence: None)
  Receive Date: 20160627
  Receipt Date: 20160627
  Transmission Date: 20160815
  Serious: Yes (Other)
  Sender: FDA-Public Use
  Company Number: None

PATIENT
  Age: 27 Year
  Sex: Female

DRUGS (1)
  1. MAKENA [Suspect]
     Active Substance: HYDROXYPROGESTERONE CAPROATE
     Dosage: 250 MG EVERY 7 DAYS INTRAMUSCULAR
     Route: 030
     Dates: start: 20160503, end: 20160524

REACTIONS (1)
  - Swelling [None]

NARRATIVE: CASE EVENT DATE: 20160524
